FAERS Safety Report 15590425 (Version 2)
Quarter: 2020Q1

REPORT INFORMATION
  Report Type: Report from Study
  Country: GB (occurrence: GB)
  Receive Date: 20181106
  Receipt Date: 20200123
  Transmission Date: 20200409
  Serious: Yes (Hospitalization, Other)
  Sender: FDA-Public Use
  Company Number: GB-BRISTOL-MYERS SQUIBB COMPANY-BMS-2017-025158

PATIENT
  Sex: Male

DRUGS (1)
  1. ABATACEPT [Suspect]
     Active Substance: ABATACEPT
     Indication: RHEUMATOID ARTHRITIS
     Dosage: 125 MG, QWK
     Route: 058
     Dates: start: 20170308

REACTIONS (6)
  - Sepsis [Unknown]
  - Lower respiratory tract infection [Unknown]
  - Arthritis infective [Unknown]
  - Pneumonia [Unknown]
  - Leukaemia [Unknown]
  - Localised infection [Unknown]
